FAERS Safety Report 11012610 (Version 1)
Quarter: 2015Q2

REPORT INFORMATION
  Report Type: Spontaneous
  Country: US (occurrence: None)
  Receive Date: 20150410
  Receipt Date: 20150410
  Transmission Date: 20150821
  Serious: Yes (Disabling)
  Sender: FDA-Public Use
  Company Number: None

PATIENT
  Age: 61 Year
  Sex: Male
  Weight: 86.18 kg

DRUGS (15)
  1. CELECOXIB. [Suspect]
     Active Substance: CELECOXIB
     Indication: PRODUCT USED FOR UNKNOWN INDICATION
     Dosage: TAKEN BY MOUTH
     Dates: start: 20150325, end: 20150407
  2. GLIPIZIDE. [Concomitant]
     Active Substance: GLIPIZIDE
  3. LOW DOSAGE ASPIRIN [Concomitant]
  4. METFORMIN [Concomitant]
     Active Substance: METFORMIN HYDROCHLORIDE
  5. PREVACID [Concomitant]
     Active Substance: LANSOPRAZOLE
  6. COFFEE [Concomitant]
     Active Substance: ARABICA COFFEE BEAN\COFFEE BEAN
  7. CELEBREX [Concomitant]
     Active Substance: CELECOXIB
  8. TOPROL XL [Concomitant]
     Active Substance: METOPROLOL SUCCINATE
  9. FISH OIL [Concomitant]
     Active Substance: FISH OIL
  10. HYDROCHLOROTHIAZIDE. [Concomitant]
     Active Substance: HYDROCHLOROTHIAZIDE
  11. GARCINA CAMBOGA [Concomitant]
  12. GLUCOSAMINE [Concomitant]
     Active Substance: GLUCOSAMINE
  13. ALTACE [Concomitant]
     Active Substance: RAMIPRIL
  14. USE CPAP [Concomitant]
  15. ZYRTEC [Concomitant]
     Active Substance: CETIRIZINE HYDROCHLORIDE

REACTIONS (5)
  - Arthralgia [None]
  - Drug ineffective [None]
  - Product substitution issue [None]
  - Mobility decreased [None]
  - Pain [None]

NARRATIVE: CASE EVENT DATE: 20150401
